FAERS Safety Report 4604655-8 (Version None)
Quarter: 2005Q1

REPORT INFORMATION
  Report Type: 
  Country: None (occurrence: None)
  Receive Date: 20050116
  Receipt Date: 20041101
  Transmission Date: 20050727
  Serious: No
  Sender: FDA-Public Use
  Company Number: PHEH2004US11724

PATIENT
  Age: 43 Year
  Sex: Male

DRUGS (2)
  1. GLEEVEC [Suspect]
     Dosage: 300 MG, QD, ORAL
     Route: 048
  2. CALCIUM (CALCIUM) [Concomitant]

REACTIONS (3)
  - ARTHRALGIA [None]
  - CALCIUM DEFICIENCY [None]
  - HERNIA [None]
